FAERS Safety Report 11985228 (Version 3)
Quarter: 2017Q1

REPORT INFORMATION
  Report Type: Report from Study
  Country: US (occurrence: US)
  Receive Date: 20160201
  Receipt Date: 20170308
  Transmission Date: 20170428
  Serious: Yes (Death, Hospitalization)
  Sender: FDA-Public Use
  Company Number: US-SEATTLE GENETICS-2015SGN01744

PATIENT

DRUGS (15)
  1. OXYCODONE [Concomitant]
     Active Substance: OXYCODONE
  2. OMEPRAZOLE. [Concomitant]
     Active Substance: OMEPRAZOLE
  3. CALCIUM CARBONATE. [Concomitant]
     Active Substance: CALCIUM CARBONATE
  4. BECLOMETHASONE                     /00212602/ [Concomitant]
     Active Substance: BECLOMETHASONE
  5. BUDESONIDE. [Concomitant]
     Active Substance: BUDESONIDE
  6. GABAPENTIN. [Concomitant]
     Active Substance: GABAPENTIN
  7. ONDANSETRON [Concomitant]
     Active Substance: ONDANSETRON
  8. FLUCONAZOLE. [Concomitant]
     Active Substance: FLUCONAZOLE
  9. BRENTUXIMAB VEDOTIN [Suspect]
     Active Substance: BRENTUXIMAB VEDOTIN
     Indication: PROPHYLAXIS AGAINST GRAFT VERSUS HOST DISEASE
     Dosage: 1.8 MG/KG, Q21D
     Route: 042
     Dates: start: 20150828, end: 20151013
  10. DAPSONE. [Concomitant]
     Active Substance: DAPSONE
  11. PREDNISONE. [Concomitant]
     Active Substance: PREDNISONE
  12. PROCHLORPERAZINE. [Concomitant]
     Active Substance: PROCHLORPERAZINE
  13. PRAMIPEXOLE. [Concomitant]
     Active Substance: PRAMIPEXOLE
  14. LORAZEPAM. [Concomitant]
     Active Substance: LORAZEPAM
  15. TACROLIMUS. [Concomitant]
     Active Substance: TACROLIMUS

REACTIONS (10)
  - Graft versus host disease in skin [Recovering/Resolving]
  - Pneumonia [Not Recovered/Not Resolved]
  - Cytomegalovirus viraemia [Not Recovered/Not Resolved]
  - Graft versus host disease in liver [Not Recovered/Not Resolved]
  - Renal failure [Recovered/Resolved]
  - Death [Fatal]
  - Graft versus host disease in gastrointestinal tract [Recovered/Resolved]
  - Septic shock [Not Recovered/Not Resolved]
  - Respiratory failure [Not Recovered/Not Resolved]
  - Sepsis [Not Recovered/Not Resolved]

NARRATIVE: CASE EVENT DATE: 20151030
